FAERS Safety Report 10238654 (Version 1)
Quarter: 2014Q2

REPORT INFORMATION
  Report Type: Spontaneous
  Country: US (occurrence: US)
  Receive Date: 20140616
  Receipt Date: 20140616
  Transmission Date: 20141212
  Serious: No
  Sender: FDA-Public Use
  Company Number: US-ENDO PHARMACEUTICALS INC.-OPCR20140128

PATIENT
  Age: 28 Year
  Sex: Male

DRUGS (3)
  1. OPANA ER 20MG [Suspect]
     Indication: MIGRAINE
     Route: 048
     Dates: start: 20140418
  2. ZOFRAN [Concomitant]
     Indication: NAUSEA
     Route: 048
  3. ATIVAN [Concomitant]
     Indication: INSOMNIA
     Route: 048

REACTIONS (5)
  - Abnormal dreams [Unknown]
  - Drug administration error [Recovered/Resolved]
  - Somnolence [Unknown]
  - Vomiting [Unknown]
  - Nausea [Unknown]
